FAERS Safety Report 8358365-4 (Version None)
Quarter: 2012Q2

REPORT INFORMATION
  Report Type: 
  Country: None (occurrence: None)
  Receive Date: 20120514
  Receipt Date: 20120510
  Transmission Date: 20120825
  Serious: Yes (Death)
  Sender: FDA-Public Use
  Company Number: US-ROCHE-1028211

PATIENT
  Sex: Female

DRUGS (3)
  1. RITUXAN [Suspect]
     Indication: PRODUCT USED FOR UNKNOWN INDICATION
     Dosage: RECEIVED 3 CYCLES
     Dates: start: 20100511
  2. CYTOXAN [Concomitant]
  3. EPIRUBICIN [Concomitant]

REACTIONS (5)
  - B-CELL LYMPHOMA [None]
  - VOMITING [None]
  - NAUSEA [None]
  - CONSTIPATION [None]
  - DIARRHOEA [None]
